FAERS Safety Report 19461686 (Version 1)
Quarter: 2021Q2

REPORT INFORMATION
  Report Type: Spontaneous
  Country: US (occurrence: US)
  Receive Date: 20210625
  Receipt Date: 20210625
  Transmission Date: 20210717
  Serious: No
  Sender: FDA-Public Use
  Company Number: US-PFIZER INC-2021613531

PATIENT
  Age: 12 Year
  Sex: Female
  Weight: 43 kg

DRUGS (1)
  1. GENOTROPIN [Suspect]
     Active Substance: SOMATROPIN
     Indication: SHORT STATURE
     Dosage: 1.5 MG DAILY BY INJECTION
     Dates: start: 2020

REACTIONS (4)
  - Device breakage [Unknown]
  - Device malfunction [Unknown]
  - Product prescribing error [Unknown]
  - Product dose omission issue [Unknown]

NARRATIVE: CASE EVENT DATE: 2020
